FAERS Safety Report 20097759 (Version 1)
Quarter: 2021Q4

REPORT INFORMATION
  Report Type: Report from Study
  Country: IE (occurrence: IE)
  Receive Date: 20211122
  Receipt Date: 20211122
  Transmission Date: 20220303
  Serious: Yes (Hospitalization)
  Sender: FDA-Public Use
  Company Number: IE-PFIZER INC-202101566240

PATIENT
  Weight: 15.5 kg

DRUGS (15)
  1. MITOXANTRONE HYDROCHLORIDE [Suspect]
     Active Substance: MITOXANTRONE HYDROCHLORIDE
     Indication: Acute myeloid leukaemia
     Dosage: 7.6 MG, 1X/DAY
     Route: 042
     Dates: start: 20211027, end: 20211030
  2. GEMTUZUMAB OZOGAMICIN [Suspect]
     Active Substance: GEMTUZUMAB OZOGAMICIN
     Indication: Acute myeloid leukaemia
     Dosage: 1.9 MG
     Route: 042
     Dates: start: 20211029, end: 20211029
  3. PITAZOBACTAM [Concomitant]
     Indication: Antibiotic therapy
     Dosage: 1350 MG, DAILY
     Dates: start: 20211022, end: 20211028
  4. GENTAMICIN [Concomitant]
     Active Substance: GENTAMICIN
     Indication: Antibiotic therapy
     Dosage: 105 MG, 1X/DAY
     Dates: start: 20211022, end: 20211023
  5. COTRIMOXAZOLE [Concomitant]
     Active Substance: SULFAMETHOXAZOLE\TRIMETHOPRIM
     Indication: Antibiotic therapy
     Dosage: 240 MG, 2X/DAY
     Dates: start: 20211027, end: 20211031
  6. AMBISOME [Concomitant]
     Active Substance: AMPHOTERICIN B
     Indication: Antifungal treatment
     Dosage: 15 MG, 1X/DAY
     Dates: start: 20211029, end: 20211103
  7. VITAMIN K [Concomitant]
     Active Substance: PHYTONADIONE
     Indication: Vitamin supplementation
     Dosage: 450 UG, 1X/DAY
     Dates: start: 20211023, end: 20211023
  8. ORAMORPH SR SUSTAINED RELEASE [Concomitant]
     Active Substance: MORPHINE SULFATE
     Indication: Analgesic therapy
     Dosage: 3 MG, DAILY
     Dates: start: 20211025, end: 20211030
  9. MYCOSTATIN [Concomitant]
     Active Substance: NYSTATIN
     Indication: Antifungal treatment
     Dosage: 1 ML, DAILY
     Dates: start: 20211025, end: 20211030
  10. ONDANSETRON [Concomitant]
     Active Substance: ONDANSETRON
     Indication: Antiemetic supportive care
     Dosage: 3 MG, 3X/DAY
     Dates: start: 20211027, end: 20211103
  11. CYCLIZINE [Concomitant]
     Active Substance: CYCLIZINE
     Indication: Antiemetic supportive care
     Dosage: 8 MG, 3X/DAY
     Dates: start: 20211030, end: 20211102
  12. FUROSEMIDE [Concomitant]
     Active Substance: FUROSEMIDE
     Indication: Diuretic therapy
     Dosage: 10 MG PRN
     Dates: start: 20211027, end: 20211027
  13. ACETAMINOPHEN [Concomitant]
     Active Substance: ACETAMINOPHEN
     Indication: Pain
     Dosage: 230 MG, PRN
     Dates: start: 20211029, end: 20211029
  14. HYDROCORTISONE [Concomitant]
     Active Substance: HYDROCORTISONE
     Indication: Adrenal insufficiency
     Dosage: 31 MG, PRN
     Dates: start: 20211029, end: 20211029
  15. CHLORPHENIRAMINE MALEATE [Concomitant]
     Active Substance: CHLORPHENIRAMINE MALEATE
     Indication: Antiallergic therapy
     Dosage: 2.5 MG, PRN
     Dates: start: 20211029, end: 20211029

REACTIONS (1)
  - Febrile neutropenia [Not Recovered/Not Resolved]

NARRATIVE: CASE EVENT DATE: 20211106
